FAERS Safety Report 5565930-6 (Version None)
Quarter: 2007Q4

REPORT INFORMATION
  Report Type: 
  Country: None (occurrence: None)
  Receive Date: 20071219
  Receipt Date: 20071210
  Transmission Date: 20080405
  Serious: Yes (Hospitalization, Other)
  Sender: FDA-Public Use
  Company Number: PHEH2006US12306

PATIENT
  Age: 76 Year
  Sex: Male

DRUGS (7)
  1. ZOMETA [Suspect]
     Indication: RESORPTION BONE INCREASED
  2. TAXOL [Concomitant]
     Indication: PROSTATE CANCER
  3. PREDNISONE [Concomitant]
     Dosage: 10 MG, QD
     Route: 048
  4. DIGITEK [Concomitant]
     Dosage: 0.25 MG, QD
     Route: 048
  5. LEXAPRO [Concomitant]
     Dosage: 10 MG, QD
     Route: 048
  6. MENEST [Concomitant]
     Dosage: 25 MG, QD
     Route: 048
  7. DYAZIDE [Concomitant]
     Dosage: UNK, QD
     Route: 048

REACTIONS (15)
  - ANAEMIA [None]
  - ANXIETY [None]
  - ASPIRATION PLEURAL CAVITY [None]
  - GASTROOESOPHAGEAL REFLUX DISEASE [None]
  - HYPOTENSION [None]
  - INJURY [None]
  - NERVOUS SYSTEM DISORDER [None]
  - ORTHOSTATIC INTOLERANCE [None]
  - OSTEONECROSIS [None]
  - PAIN [None]
  - PERICARDIAL EFFUSION [None]
  - PHYSICAL DISABILITY [None]
  - PLEURAL EFFUSION [None]
  - SPINAL CORD COMPRESSION [None]
  - WOUND [None]
